FAERS Safety Report 24025676 (Version 5)
Quarter: 2024Q3

REPORT INFORMATION
  Report Type: Report from Study
  Country: IL (occurrence: IL)
  Receive Date: 20240628
  Receipt Date: 20240710
  Transmission Date: 20241016
  Serious: No
  Sender: ROCHE
  Company Number: IL-ROCHE-3351407

PATIENT
  Age: 67 Year
  Sex: Female

DRUGS (8)
  1. ALECTINIB [Suspect]
     Active Substance: ALECTINIB
     Indication: Non-small cell lung cancer
     Route: 048
     Dates: start: 20220516
  2. JARDIANCE [Concomitant]
     Active Substance: EMPAGLIFLOZIN
     Indication: Diabetes mellitus
     Route: 048
     Dates: start: 20221019
  3. SIMVASTATIN [Concomitant]
     Active Substance: SIMVASTATIN
     Route: 048
     Dates: start: 20130124
  4. ASPIRIN [Concomitant]
     Active Substance: ASPIRIN
     Route: 048
     Dates: start: 20160513
  5. SIMVAXON [Concomitant]
     Route: 048
     Dates: start: 20150514
  6. INSULIN DEGLUDEC [Concomitant]
     Active Substance: INSULIN DEGLUDEC
     Indication: Diabetes mellitus
     Dosage: 100 UNKNOWN
     Route: 045
     Dates: start: 20220907
  7. ALECTINIB [Concomitant]
     Active Substance: ALECTINIB
     Indication: Lung neoplasm malignant
     Dates: start: 20220322
  8. METFORMIN [Concomitant]
     Active Substance: METFORMIN HYDROCHLORIDE
     Indication: Diabetes mellitus
     Route: 048
     Dates: start: 20121115

REACTIONS (2)
  - Blood bilirubin increased [Recovered/Resolved]
  - Liver function test increased [Not Recovered/Not Resolved]

NARRATIVE: CASE EVENT DATE: 20230911
